FAERS Safety Report 7512051-9 (Version None)
Quarter: 2011Q2

REPORT INFORMATION
  Report Type: 
  Country: None (occurrence: None)
  Receive Date: 20110531
  Receipt Date: 20110516
  Transmission Date: 20111010
  Serious: Yes (Other)
  Sender: FDA-Public Use
  Company Number: US-BAYER-2011-018105

PATIENT
  Age: 18 Year
  Sex: Female
  Weight: 73 kg

DRUGS (4)
  1. YASMIN [Suspect]
     Indication: CONTRACEPTION
     Dosage: UNK
     Route: 048
     Dates: start: 20060925, end: 20070728
  2. YAZ [Suspect]
     Indication: CONTRACEPTION
     Dosage: UNK
     Dates: start: 20080623, end: 20090807
  3. HYDROCODONE BITARTRATE [Concomitant]
     Indication: PAIN MANAGEMENT
     Dosage: UNK UNK, PRN
     Route: 048
     Dates: start: 20070228, end: 20070315
  4. PHENTERMINE [Concomitant]
     Indication: WEIGHT DECREASED
     Dosage: UNK
     Route: 048
     Dates: start: 20061101, end: 20070101

REACTIONS (6)
  - FLATULENCE [None]
  - GASTROINTESTINAL DISORDER [None]
  - GALLBLADDER PAIN [None]
  - PAIN [None]
  - POST CHOLECYSTECTOMY SYNDROME [None]
  - GALLBLADDER DISORDER [None]
